FAERS Safety Report 3987618 (Version 7)
Quarter: 2020Q3

REPORT INFORMATION
  Report Type: Spontaneous
  Country: JP (occurrence: None)
  Receive Date: 20030806
  Receipt Date: 20031211
  Transmission Date: 20201105
  Serious: Yes (Life-Threatening, Hospitalization, Other)
  Sender: FDA-Public Use
  Company Number: 2003032021

PATIENT
  Age: 70 Year
  Sex: Female

DRUGS (10)
  1. LYSOZYME HYDROCHLORIDE [Suspect]
     Active Substance: LYSOZYME HYDROCHLORIDE
     Indication: URINARY TRACT INFECTION
     Dosage: (DAILY), ORAL
     Route: 048
     Dates: start: 20030528, end: 20030530
  2. TEPRENONE [Suspect]
     Active Substance: TEPRENONE
     Indication: PROPHYLAXIS AGAINST GASTROINTESTINAL ULCER
     Dosage: ORAL
     Route: 048
     Dates: start: 20021011, end: 20030624
  3. FAMOTIDINE (FAMOTIDINE) [Concomitant]
     Active Substance: FAMOTIDINE
  4. FERROUS SULFATE. [Suspect]
     Active Substance: FERROUS SULFATE
     Indication: IRON DEFICIENCY ANAEMIA
     Dosage: ORAL
     Route: 048
     Dates: start: 20021011, end: 20030623
  5. PREDNISOLONE. [Concomitant]
     Active Substance: PREDNISOLONE
  6. LIPITOR [Suspect]
     Active Substance: ATORVASTATIN CALCIUM
     Indication: HYPERLIPIDAEMIA
     Dosage: 10 MG (DAILY), ORAL
     Route: 048
     Dates: start: 20021011, end: 20030623
  7. UNSPECIFIED INGREDIENT [Suspect]
     Active Substance: UNSPECIFIED INGREDIENT
     Indication: DYSPEPSIA
     Dosage: 1 GRAM (DAILY), ORAL
     Route: 048
     Dates: start: 20021011, end: 20030623
  8. ALLOPURINOL. [Suspect]
     Active Substance: ALLOPURINOL
     Indication: HYPERURICAEMIA
     Dosage: (DAILY), ORAL
     Route: 048
     Dates: start: 20021011, end: 20030623
  9. AMLODIPINE BESYLATE. [Concomitant]
     Active Substance: AMLODIPINE BESYLATE
  10. HERBAL NOS [Concomitant]
     Active Substance: HERBALS

REACTIONS (9)
  - Haemodialysis [None]
  - Drug eruption [None]
  - Toxic epidermal necrolysis [None]
  - Amyloidosis [None]
  - Pancreatitis acute [None]
  - Blood pressure decreased [None]
  - Pancreatic pseudocyst [None]
  - Nikolsky^s sign [None]
  - Acute kidney injury [None]

NARRATIVE: CASE EVENT DATE: 20030528
